FAERS Safety Report 15774293 (Version 1)
Quarter: 2018Q4

REPORT INFORMATION
  Report Type: Spontaneous
  Country: FR (occurrence: FR)
  Receive Date: 20181229
  Receipt Date: 20181229
  Transmission Date: 20190205
  Serious: Yes (Other)
  Sender: FDA-Public Use
  Company Number: FR-AUROBINDO-AUR-APL-2018-063596

PATIENT
  Age: 40 Year
  Sex: Female

DRUGS (1)
  1. AMOXICILLIN. [Suspect]
     Active Substance: AMOXICILLIN
     Indication: RESPIRATORY TRACT INFECTION
     Dosage: UNK, DOSAGE NOT KNOWN
     Route: 048
     Dates: start: 2003, end: 2003

REACTIONS (6)
  - Oropharyngeal swelling [Recovered/Resolved]
  - Anaphylactic reaction [Recovered/Resolved]
  - Dysphagia [Recovered/Resolved]
  - Swollen tongue [Recovered/Resolved]
  - Dyspnoea [Recovered/Resolved]
  - Dysphonia [Recovered/Resolved]

NARRATIVE: CASE EVENT DATE: 2003
